FAERS Safety Report 11620558 (Version 1)
Quarter: 2015Q4

REPORT INFORMATION
  Report Type: Report from Study
  Country: FR (occurrence: FR)
  Receive Date: 20151012
  Receipt Date: 20151012
  Transmission Date: 20160304
  Serious: Yes (Hospitalization)
  Sender: FDA-Public Use
  Company Number: PHHY2015FR122391

PATIENT
  Age: 75 Year
  Sex: Female

DRUGS (6)
  1. LDK378 [Suspect]
     Active Substance: CERITINIB
     Indication: LUNG ADENOCARCINOMA METASTATIC
     Dosage: 150 MG, BID (2 CAPS PER DAY)
     Route: 065
     Dates: start: 20150715
  2. LDK378 [Suspect]
     Active Substance: CERITINIB
     Dosage: 150 MG, TID (3 CAPS PER DAY)
     Route: 065
     Dates: start: 20150723
  3. SKENAN [Concomitant]
     Active Substance: MORPHINE SULFATE
     Indication: PRODUCT USED FOR UNKNOWN INDICATION
     Dosage: 30 MG, BID
     Route: 065
  4. LDK378 [Suspect]
     Active Substance: CERITINIB
     Dosage: 150 MG, BID (2 CAPS PER DAY)
     Route: 065
     Dates: start: 20150817, end: 20150820
  5. LDK378 [Suspect]
     Active Substance: CERITINIB
     Dosage: 150 MG, QD (1 CAP PER DAY)
     Route: 065
     Dates: start: 20150914
  6. LDK378 [Suspect]
     Active Substance: CERITINIB
     Dosage: UNK
     Route: 065
     Dates: start: 20150822, end: 20150828

REACTIONS (1)
  - Oesophagitis [Recovering/Resolving]

NARRATIVE: CASE EVENT DATE: 20150828
